FAERS Safety Report 19552834 (Version 1)
Quarter: 2021Q3

REPORT INFORMATION
  Report Type: Spontaneous
  Country: US (occurrence: US)
  Receive Date: 20210714
  Receipt Date: 20210714
  Transmission Date: 20211014
  Serious: No
  Sender: FDA-Public Use
  Company Number: US-SA-2021SA229056

PATIENT

DRUGS (13)
  1. DUPIXENT [Suspect]
     Active Substance: DUPILUMAB
     Indication: DERMATITIS ATOPIC
     Dosage: 600 MG, 1X
     Route: 058
     Dates: start: 20210615, end: 20210615
  2. TRIAMCINOLONE ACETONIDE. [Concomitant]
     Active Substance: TRIAMCINOLONE ACETONIDE
  3. ZINC. [Concomitant]
     Active Substance: ZINC
  4. VITAMINS NOS [Concomitant]
     Active Substance: VITAMINS
  5. ARIPIPRAZOLE. [Concomitant]
     Active Substance: ARIPIPRAZOLE
  6. LEVONORGESTREL. [Concomitant]
     Active Substance: LEVONORGESTREL
  7. CALCIPOTRIENE. [Concomitant]
     Active Substance: CALCIPOTRIENE
  8. CLOTRIMAZOLE. [Concomitant]
     Active Substance: CLOTRIMAZOLE
  9. PIMECROLIMUS. [Concomitant]
     Active Substance: PIMECROLIMUS
  10. BIOTIN [Concomitant]
     Active Substance: BIOTIN
  11. BETAMETHA [Concomitant]
  12. DUPIXENT [Suspect]
     Active Substance: DUPILUMAB
     Dosage: 300 MG, QOW
     Route: 058
     Dates: start: 2021
  13. KETOCONAZOLE. [Concomitant]
     Active Substance: KETOCONAZOLE

REACTIONS (3)
  - Injection site erythema [Unknown]
  - Injection site mass [Unknown]
  - Eczema [Unknown]

NARRATIVE: CASE EVENT DATE: 2021
